FAERS Safety Report 6874769 (Version 12)
Quarter: 2012Q4

REPORT INFORMATION
  Report Type: 
  Country: US (occurrence: US)
  Receive Date: 20090107
  Receipt Date: 20121120
  Transmission Date: 20130627
  Serious: Yes (Other)
  Sender: FDA-Public Use
  Company Number: PHEH2009US00447

PATIENT
  Sex: Male

DRUGS (11)
  1. ZOMETA [Suspect]
     Indication: OSTEOPOROSIS
     Dosage: 4 mg, QMO
     Route: 042
     Dates: end: 20021109
  2. ZOMETA [Suspect]
     Indication: BONE LOSS
  3. ZOMETA [Suspect]
     Indication: METASTASES TO PELVIS
  4. VICODIN [Concomitant]
     Dosage: 1 DF, Q4H PRN
     Route: 048
  5. IBUPROFEN [Concomitant]
     Dosage: 600 mg, Q6H
     Route: 048
  6. CHLORHEXIDINE [Concomitant]
  7. PEN-VEE-K [Concomitant]
     Dosage: 500 mg, QID
     Route: 048
  8. AROMASIN [Concomitant]
  9. PAXIL [Concomitant]
  10. OXYCODONE [Concomitant]
  11. PRILOSEC [Concomitant]

REACTIONS (37)
  - Intervertebral disc degeneration [Unknown]
  - Hiatus hernia [Unknown]
  - Diverticulum intestinal [Unknown]
  - Vascular calcification [Unknown]
  - Aortic calcification [Unknown]
  - Tuberculosis [Unknown]
  - Glaucoma [Unknown]
  - Facet joint syndrome [Unknown]
  - Compression fracture [Unknown]
  - Atelectasis [Unknown]
  - Depression [Unknown]
  - Osteoarthritis [Unknown]
  - Lymphadenopathy [Unknown]
  - Thyroid neoplasm [Unknown]
  - Facial bones fracture [Unknown]
  - Tonsillar disorder [Unknown]
  - Osteonecrosis of jaw [Unknown]
  - Osteomyelitis [Unknown]
  - Bone lesion [Unknown]
  - Erythema [Unknown]
  - Exposed bone in jaw [Unknown]
  - Fibrosis [Unknown]
  - Bone marrow oedema [Unknown]
  - Osteitis [Unknown]
  - Ulcer [Unknown]
  - Pain in jaw [Unknown]
  - Purulent discharge [Unknown]
  - Jaw fracture [Unknown]
  - Actinomycosis [Unknown]
  - Hypoaesthesia [Unknown]
  - Cataract [Unknown]
  - Oral papilloma [Unknown]
  - Hyperkeratosis [Unknown]
  - Fall [Unknown]
  - Gastrooesophageal reflux disease [Unknown]
  - Arthritis [Unknown]
  - Hypomagnesaemia [Unknown]
